FAERS Safety Report 7981526-0 (Version None)
Quarter: 2011Q4

REPORT INFORMATION
  Report Type: 
  Country: None (occurrence: None)
  Receive Date: 20111215
  Receipt Date: 20111213
  Transmission Date: 20120403
  Serious: Yes (Other)
  Sender: FDA-Public Use
  Company Number: JP-PFIZER INC-2011303527

PATIENT
  Age: 45 Year
  Sex: Male

DRUGS (1)
  1. VARENICLINE TARTRATE [Suspect]
     Dosage: UNK
     Route: 048

REACTIONS (4)
  - FALL [None]
  - FEELING ABNORMAL [None]
  - SPINAL FRACTURE [None]
  - LOSS OF CONSCIOUSNESS [None]
